FAERS Safety Report 7911090-3 (Version None)
Quarter: 2011Q4

REPORT INFORMATION
  Report Type: 
  Country: None (occurrence: None)
  Receive Date: 20111114
  Receipt Date: 20111101
  Transmission Date: 20120403
  Serious: Yes (Other)
  Sender: FDA-Public Use
  Company Number: FR-RANBAXY-2011US-50188

PATIENT
  Age: 76 Year
  Sex: Female

DRUGS (1)
  1. ENALAPRIL MALEATE [Suspect]
     Indication: HYPERTENSION
     Dosage: 20 MG, UNK, DAILY
     Route: 065
     Dates: start: 19850701, end: 19860107

REACTIONS (1)
  - POLYMYALGIA RHEUMATICA [None]
